FAERS Safety Report 5510865-8 (Version None)
Quarter: 2007Q4

REPORT INFORMATION
  Report Type: 
  Country: None (occurrence: None)
  Receive Date: 20071107
  Receipt Date: 20071025
  Transmission Date: 20080405
  Serious: Yes (Death, Other)
  Sender: FDA-Public Use
  Company Number: 07H-163-0313397-00

PATIENT
  Age: 8 Month
  Sex: Male
  Weight: 4.1 kg

DRUGS (17)
  1. FENTANYL CITRATE [Suspect]
     Indication: MAINTENANCE OF ANAESTHESIA
  2. PROPOFOL [Suspect]
     Indication: INDUCTION OF ANAESTHESIA
  3. SEVOFLURANE [Suspect]
     Indication: MAINTENANCE OF ANAESTHESIA
  4. ROCURONIUM (ROCURONIUM) [Suspect]
     Indication: INTUBATION
  5. IV HYPERALIMENTATION (SOLUTIONS FOR PARENTERAL NUTRITION) [Concomitant]
  6. FUROSEMIDE [Concomitant]
  7. GOLYTELY (GOLYTELY /00747901/) [Concomitant]
  8. ENEMA (ENAMAS) [Concomitant]
  9. OXYGEN (OXYGEN) [Concomitant]
  10. LACTATED RINGER'S SOLUTION (RINGER-LACTATE /01126301/) [Concomitant]
  11. 5% ALBUMIN (ALBUMIN) [Concomitant]
  12. PHENOBARBITAL (PHENOBARBITAL SODIUM) [Concomitant]
  13. VANCOMYCIN [Concomitant]
  14. CEFTAZIDIME [Concomitant]
  15. PIPERACILLIN / TAZOBACTAM (PIP / TAZO) [Concomitant]
  16. DOPAMINE HCL [Concomitant]
  17. EPINEPHRINE [Concomitant]

REACTIONS (16)
  - BLOOD CULTURE POSITIVE [None]
  - CHOLESTASIS [None]
  - CONDITION AGGRAVATED [None]
  - DUCHENNE MUSCULAR DYSTROPHY [None]
  - HAEMATOMA [None]
  - HEPATOMEGALY [None]
  - HYPERTHERMIA [None]
  - HYPOKALAEMIA [None]
  - PCO2 INCREASED [None]
  - PETECHIAE [None]
  - POST PROCEDURAL COMPLICATION [None]
  - PULMONARY HYPERTENSION [None]
  - RENAL FAILURE [None]
  - RHABDOMYOLYSIS [None]
  - STAPHYLOCOCCAL INFECTION [None]
  - VENTRICULAR DYSFUNCTION [None]
